FAERS Safety Report 8876897 (Version 3)
Quarter: 2012Q4

REPORT INFORMATION
  Report Type: Report from Study
  Country: US (occurrence: US)
  Receive Date: 20121029
  Receipt Date: 20121030
  Transmission Date: 20130627
  Serious: Yes (Death)
  Sender: FDA-Public Use
  Company Number: US-JNJFOC-20121013203

PATIENT
  Age: 48 Year
  Sex: Male
  Weight: 79 kg

DRUGS (5)
  1. APAP [Suspect]
     Route: 048
  2. APAP [Suspect]
     Indication: PRODUCT USED FOR UNKNOWN INDICATION
     Route: 048
     Dates: start: 201210
  3. PERCOCET [Suspect]
     Indication: SUBSTANCE USE
     Route: 048
     Dates: start: 201210
  4. VICODIN [Suspect]
     Indication: SUBSTANCE USE
     Route: 048
     Dates: start: 201210
  5. METFORMIN [Suspect]
     Indication: PRODUCT USED FOR UNKNOWN INDICATION
     Route: 048
     Dates: start: 201210

REACTIONS (10)
  - Overdose [Fatal]
  - Multi-organ failure [Fatal]
  - Encephalopathy [Fatal]
  - Anuria [Fatal]
  - Coma [Fatal]
  - Hypotension [Fatal]
  - Shock [Fatal]
  - Cerebral hypoperfusion [Fatal]
  - Metabolic acidosis [Fatal]
  - Malaise [Fatal]
